FAERS Safety Report 9899948 (Version 3)
Quarter: 2015Q2

REPORT INFORMATION
  Report Type: Report from Study
  Country: US (occurrence: US)
  Receive Date: 20140214
  Receipt Date: 20150515
  Transmission Date: 20150821
  Serious: Yes (Hospitalization)
  Sender: FDA-Public Use
  Company Number: US-BRISTOL-MYERS SQUIBB COMPANY-20174553

PATIENT
  Age: 62 Year
  Sex: Male
  Weight: 104 kg

DRUGS (7)
  1. NIVOLUMAB [Suspect]
     Active Substance: NIVOLUMAB
     Indication: METASTATIC OCULAR MELANOMA
     Dosage: 318 MG, UNK
     Route: 042
     Dates: start: 20130916
  2. IPILIMUMAB [Suspect]
     Active Substance: IPILIMUMAB
     Indication: METASTATIC OCULAR MELANOMA
     Dosage: 318 MG, UNK
     Route: 042
     Dates: start: 20131211
  3. ATENOLOL. [Concomitant]
     Active Substance: ATENOLOL
     Indication: PREMEDICATION
     Dosage: UNK
     Route: 065
     Dates: start: 20101217
  4. NEXIUM [Concomitant]
     Active Substance: ESOMEPRAZOLE MAGNESIUM
     Indication: PREMEDICATION
     Dosage: 40 MG, UNK
     Route: 065
     Dates: start: 20110127
  5. ASPIRIN                            /00002701/ [Concomitant]
     Active Substance: ASPIRIN
     Indication: PREMEDICATION
     Dosage: 81 MG, UNK
     Route: 065
     Dates: start: 20130211
  6. NIZORAL [Concomitant]
     Active Substance: KETOCONAZOLE
     Indication: PREMEDICATION
     Dosage: 1DF=2%
     Route: 065
     Dates: start: 20110920
  7. METFORMIN [Concomitant]
     Active Substance: METFORMIN HYDROCHLORIDE
     Indication: PREMEDICATION
     Dosage: 500 MG, UNK
     Route: 065
     Dates: start: 20120123

REACTIONS (2)
  - Pneumocystis jirovecii pneumonia [Recovered/Resolved]
  - Lung infection [Recovered/Resolved]

NARRATIVE: CASE EVENT DATE: 20140203
